FAERS Safety Report 8589732-1 (Version None)
Quarter: 2012Q3

REPORT INFORMATION
  Report Type: 
  Country: None (occurrence: None)
  Receive Date: 20120813
  Receipt Date: 20081130
  Transmission Date: 20120928
  Serious: Yes (Hospitalization)
  Sender: FDA-Public Use
  Company Number: ZA-ROCHE-1093246

PATIENT
  Sex: Female

DRUGS (2)
  1. MIRCERA [Suspect]
     Indication: PRODUCT USED FOR UNKNOWN INDICATION
     Route: 058
     Dates: start: 20100623
  2. NEORECORMON [Suspect]
     Indication: PRODUCT USED FOR UNKNOWN INDICATION
     Route: 058
     Dates: start: 20080522

REACTIONS (4)
  - TRANSPLANT [None]
  - HAEMOGLOBIN DECREASED [None]
  - INSERTION OF AMBULATORY PERITONEAL CATHETER [None]
  - HIP ARTHROPLASTY [None]
